FAERS Safety Report 15476104 (Version 2)
Quarter: 2018Q4

REPORT INFORMATION
  Report Type: Spontaneous
  Country: FR (occurrence: FR)
  Receive Date: 20181009
  Receipt Date: 20181130
  Transmission Date: 20190205
  Serious: Yes (Other)
  Sender: FDA-Public Use
  Company Number: FR-ROCHE-2194114

PATIENT
  Age: 93 Year
  Sex: Male
  Weight: 60 kg

DRUGS (5)
  1. ERIVEDGE [Suspect]
     Active Substance: VISMODEGIB
     Route: 048
     Dates: start: 20180702, end: 20181001
  2. COMBODART [Concomitant]
     Active Substance: DUTASTERIDE\TAMSULOSIN
  3. VALSARTAN. [Concomitant]
     Active Substance: VALSARTAN
  4. ERIVEDGE [Suspect]
     Active Substance: VISMODEGIB
     Indication: BASAL CELL CARCINOMA
     Route: 048
     Dates: start: 20161107, end: 20170630
  5. PRAVASTATINE [Concomitant]
     Active Substance: PRAVASTATIN

REACTIONS (3)
  - Visual acuity reduced [Recovered/Resolved]
  - Ageusia [Unknown]
  - Atrioventricular block [Unknown]

NARRATIVE: CASE EVENT DATE: 201808
